FAERS Safety Report 6491826-1 (Version None)
Quarter: 2009Q4

REPORT INFORMATION
  Report Type: 
  Country: None (occurrence: None)
  Receive Date: 20091210
  Receipt Date: 20091130
  Transmission Date: 20100525
  Serious: Yes (Hospitalization, Other)
  Sender: FDA-Public Use
  Company Number: 233397J09USA

PATIENT
  Age: 48 Year
  Sex: Female
  Weight: 84 kg

DRUGS (8)
  1. REBIF [Suspect]
     Indication: MULTIPLE SCLEROSIS
     Dosage: 44 MCG, 3 IN 1 WEEKS, SUBCUTANEOUS; 44 MCG, 3 IN 1 WEEKS, SUBCUTANEOUS
     Route: 058
     Dates: start: 20040105, end: 20090928
  2. BENICAR [Concomitant]
  3. ACTOS [Concomitant]
  4. LEXAPRO [Concomitant]
  5. RAMIPRIL (RAMIPRIL /00885601/) [Concomitant]
  6. LANTUS [Concomitant]
  7. HUMULIN INSULIN (INSULIN HUMAN) [Concomitant]
  8. GLUCERNA (GLUCERNA) [Concomitant]

REACTIONS (12)
  - ASTHENIA [None]
  - BILE DUCT OBSTRUCTION [None]
  - BIOPSY BILE DUCT ABNORMAL [None]
  - CEREBRAL THROMBOSIS [None]
  - CHEST PAIN [None]
  - ECONOMIC PROBLEM [None]
  - FALL [None]
  - HEART RATE INCREASED [None]
  - PALPITATIONS [None]
  - PANCREATIC NECROSIS [None]
  - PANCREATITIS ACUTE [None]
  - RECTAL HAEMORRHAGE [None]
